FAERS Safety Report 9411726 (Version 1)
Quarter: 2013Q3

REPORT INFORMATION
  Report Type: Spontaneous
  Country: US (occurrence: US)
  Receive Date: 20130722
  Receipt Date: 20130722
  Transmission Date: 20140515
  Serious: Yes (Other)
  Sender: FDA-Public Use
  Company Number: US-JNJFOC-20130611800

PATIENT
  Age: 41 Year
  Sex: Female
  Weight: 61.24 kg

DRUGS (3)
  1. SUDAFED 24 HOUR [Suspect]
     Route: 048
  2. SUDAFED 24 HOUR [Suspect]
     Indication: SINUS HEADACHE
     Dosage: FREQUENCY ONCE A DAY
     Route: 048
     Dates: start: 20130614, end: 20130614
  3. CENTRUM MULTIVITAMINS [Concomitant]
     Dosage: FOR YEARS
     Route: 065

REACTIONS (6)
  - Palpitations [Recovered/Resolved]
  - Feeling jittery [Recovered/Resolved]
  - Abdominal discomfort [Recovered/Resolved]
  - Feeling abnormal [Recovered/Resolved]
  - Headache [Recovered/Resolved]
  - Dizziness [Recovered/Resolved]
